FAERS Safety Report 24233463 (Version 1)
Quarter: 2024Q3

REPORT INFORMATION
  Report Type: Spontaneous
  Country: US (occurrence: None)
  Receive Date: 20240821
  Receipt Date: 20240821
  Transmission Date: 20241016
  Serious: No
  Sender: Public
  Company Number: None

PATIENT
  Age: 50 Year
  Sex: Female
  Weight: 87.4 kg

DRUGS (5)
  1. CARBOPLATIN [Suspect]
     Active Substance: CARBOPLATIN
  2. CYCLOPHOSPHAMIDE [Concomitant]
  3. DOXORUBICIN HYDROCHLORIDE [Concomitant]
  4. TAXOL [Concomitant]
     Active Substance: PACLITAXEL
  5. PEMBROLIZUMAB [Concomitant]
     Active Substance: PEMBROLIZUMAB

REACTIONS (17)
  - Neutropenia [None]
  - Lymphadenopathy [None]
  - Dysphagia [None]
  - Asthenia [None]
  - Sepsis [None]
  - Bacteraemia [None]
  - Liver injury [None]
  - Renal injury [None]
  - Hypotension [None]
  - Tachycardia [None]
  - Tachypnoea [None]
  - Blood potassium decreased [None]
  - Pancytopenia [None]
  - Thrombocytopenia [None]
  - Pyrexia [None]
  - Atelectasis [None]
  - Enterocolitis [None]

NARRATIVE: CASE EVENT DATE: 20240729
